FAERS Safety Report 18894986 (Version 1)
Quarter: 2021Q1

REPORT INFORMATION
  Report Type: Spontaneous
  Country: US (occurrence: US)
  Receive Date: 20210215
  Receipt Date: 20210215
  Transmission Date: 20210420
  Serious: No
  Sender: FDA-Public Use
  Company Number: US-PFIZER INC-2021099732

PATIENT
  Sex: Female

DRUGS (1)
  1. TALZENNA [Suspect]
     Active Substance: TALAZOPARIB TOSYLATE
     Indication: BREAST CANCER
     Dosage: UNK
     Dates: start: 2019

REACTIONS (4)
  - Madarosis [Unknown]
  - Stomatitis [Unknown]
  - Gastrooesophageal reflux disease [Unknown]
  - Alopecia [Unknown]
